FAERS Safety Report 5109768-2 (Version None)
Quarter: 2006Q3

REPORT INFORMATION
  Report Type: 
  Country: None (occurrence: None)
  Receive Date: 20060915
  Receipt Date: 20060904
  Transmission Date: 20061208
  Serious: Yes (Hospitalization)
  Sender: FDA-Public Use
  Company Number: 2006109040

PATIENT
  Age: 58 Year
  Sex: Female
  Weight: 63.5 kg

DRUGS (11)
  1. SUTENT [Suspect]
     Indication: RENAL CELL CARCINOMA STAGE UNSPECIFIED
     Dosage: 37.5 MG (37.5 MG, QD-INTERVAL: 4 WEEKS ON, 2 OFF), ORAL
     Route: 048
     Dates: start: 20060524
  2. DICLOFENAC SODIUM [Concomitant]
  3. DEXTROPROPOXYPHENE (DEXTROPROPROXYPHEN) [Concomitant]
  4. IBUPROFEN [Concomitant]
  5. DEXAMETHASONE TAB [Concomitant]
  6. ENALAPRIL MALEATE [Concomitant]
  7. TRAMADOL HCL [Concomitant]
  8. LEVOFLOXACIN [Concomitant]
  9. OXYCODONE HCL [Concomitant]
  10. MEPREDNISONE (MEPREDNISONE) [Concomitant]
  11. AMOXICILLIN [Concomitant]

REACTIONS (12)
  - ANAEMIA [None]
  - BACK PAIN [None]
  - BACTERIAL INFECTION [None]
  - CREPITATIONS [None]
  - DRUG INEFFECTIVE [None]
  - ERYTHEMA [None]
  - INDURATION [None]
  - PERINEPHRIC ABSCESS [None]
  - PERIRENAL HAEMATOMA [None]
  - PNEUMOPERITONEUM [None]
  - SUBCUTANEOUS EMPHYSEMA [None]
  - TUMOUR NECROSIS [None]
